FAERS Safety Report 10523521 (Version 2)
Quarter: 2014Q4

REPORT INFORMATION
  Report Type: Report from Study
  Country: CA (occurrence: CA)
  Receive Date: 20141017
  Receipt Date: 20141017
  Transmission Date: 20150528
  Serious: Yes (Other)
  Sender: FDA-Public Use
  Company Number: CA-ROCHE-1469281

PATIENT
  Age: 51 Year
  Sex: Female

DRUGS (15)
  1. DIAMICRON [Concomitant]
     Active Substance: GLICLAZIDE
  2. ACETAMINOPHEN. [Concomitant]
     Active Substance: ACETAMINOPHEN
     Route: 048
     Dates: start: 20141001
  3. IRBESARTAN. [Concomitant]
     Active Substance: IRBESARTAN
  4. METHYLPREDNISOLONE. [Concomitant]
     Active Substance: METHYLPREDNISOLONE
     Route: 042
     Dates: start: 20141001
  5. JANUVIA [Concomitant]
     Active Substance: SITAGLIPTIN PHOSPHATE
  6. VENTOLIN [Concomitant]
     Active Substance: ALBUTEROL SULFATE
  7. RITUXAN [Suspect]
     Active Substance: RITUXIMAB
     Indication: RHEUMATOID ARTHRITIS
     Dosage: FREQUENCY:  DAY 1, 15
     Route: 042
     Dates: start: 20141001
  8. METFORMIN [Concomitant]
     Active Substance: METFORMIN HYDROCHLORIDE
  9. ADALAT [Concomitant]
     Active Substance: NIFEDIPINE
  10. DIPHENHYDRAMINE HCL [Concomitant]
     Active Substance: DIPHENHYDRAMINE HYDROCHLORIDE
     Route: 048
     Dates: start: 20141001
  11. METHOTREXATE [Concomitant]
     Active Substance: METHOTREXATE
  12. INSULIN [Concomitant]
     Active Substance: INSULIN NOS
  13. LANSOPRAZOLE. [Concomitant]
     Active Substance: LANSOPRAZOLE
  14. FOLIC ACID. [Concomitant]
     Active Substance: FOLIC ACID
  15. SYNTHROID [Concomitant]
     Active Substance: LEVOTHYROXINE SODIUM

REACTIONS (4)
  - Fatigue [Unknown]
  - Arterial occlusive disease [Unknown]
  - Infusion related reaction [Unknown]
  - Angina pectoris [Unknown]

NARRATIVE: CASE EVENT DATE: 20141001
